FAERS Safety Report 4381855-6 (Version None)
Quarter: 2004Q2

REPORT INFORMATION
  Report Type: 
  Country: None (occurrence: None)
  Receive Date: 20040618
  Receipt Date: 20040611
  Transmission Date: 20050107
  Serious: Yes (Hospitalization)
  Sender: FDA-Public Use
  Company Number: 04-06-0841

PATIENT
  Age: 48 Year
  Sex: Male

DRUGS (2)
  1. CLOZAPINE [Suspect]
     Indication: SCHIZOPHRENIA
     Dosage: 125-175MG QD ORAL
     Route: 048
     Dates: start: 19980501, end: 20040501
  2. COUMADIN [Suspect]
     Indication: PULMONARY EMBOLISM

REACTIONS (4)
  - DRUG INTERACTION [None]
  - DRUG TOXICITY [None]
  - LETHARGY [None]
  - PULMONARY EMBOLISM [None]
